FAERS Safety Report 8170980-X (Version None)
Quarter: 2012Q1

REPORT INFORMATION
  Report Type: 
  Country: None (occurrence: None)
  Receive Date: 20120228
  Receipt Date: 20120222
  Transmission Date: 20120608
  Serious: Yes (Other)
  Sender: FDA-Public Use
  Company Number: JP-PFIZER INC-2012047607

PATIENT
  Age: 69 Year
  Sex: Female

DRUGS (1)
  1. LYRICA [Suspect]
     Dosage: 50 MG (2DOSE FORM) PER DAY
     Route: 048

REACTIONS (3)
  - PAIN [None]
  - ANKYLOSING SPONDYLITIS [None]
  - MICTURITION DISORDER [None]
